FAERS Safety Report 21854227 (Version 1)
Quarter: 2023Q1

REPORT INFORMATION
  Report Type: Spontaneous
  Country: US (occurrence: None)
  Receive Date: 20230111
  Receipt Date: 20230111
  Transmission Date: 20230418
  Serious: Yes (Other)
  Sender: FDA-Public Use
  Company Number: None

PATIENT
  Age: 56 Year
  Sex: Female
  Weight: 60.75 kg

DRUGS (9)
  1. BELBUCA [Suspect]
     Active Substance: BUPRENORPHINE HYDROCHLORIDE
     Indication: Osteoarthritis
     Dosage: FREQUENCY : TWICE A DAY;?OTHER ROUTE : IN THE CHECK OF THE MOUTH;?
     Route: 050
     Dates: start: 20210115, end: 20220418
  2. BELBUCA [Suspect]
     Active Substance: BUPRENORPHINE HYDROCHLORIDE
     Indication: Spinal stenosis
  3. BELBUCA [Suspect]
     Active Substance: BUPRENORPHINE HYDROCHLORIDE
     Indication: Cartilage injury
  4. CLONAZEPAM [Concomitant]
     Active Substance: CLONAZEPAM
  5. VYVANSE [Concomitant]
     Active Substance: LISDEXAMFETAMINE DIMESYLATE
  6. OXYCODONE HYDROCHLORIDE [Concomitant]
     Active Substance: OXYCODONE HYDROCHLORIDE
  7. VITAMIN C [Concomitant]
     Active Substance: ASCORBIC ACID
  8. VITAMIN D NOS [Concomitant]
     Active Substance: VITAMIN D NOS
  9. VITAMINS [Concomitant]
     Active Substance: VITAMINS

REACTIONS (3)
  - Tooth fracture [None]
  - Device physical property issue [None]
  - Dental caries [None]

NARRATIVE: CASE EVENT DATE: 20220328
